FAERS Safety Report 4960809-2 (Version None)
Quarter: 2006Q2

REPORT INFORMATION
  Report Type: 
  Country: None (occurrence: None)
  Receive Date: 20060403
  Receipt Date: 20050222
  Transmission Date: 20061013
  Serious: Yes (Hospitalization)
  Sender: FDA-Public Use
  Company Number: US-MERCK-0502USA03176

PATIENT
  Age: 68 Year
  Sex: Male
  Weight: 105 kg

DRUGS (4)
  1. VIOXX [Suspect]
     Route: 048
     Dates: start: 20020305, end: 20030201
  2. NORVASC [Concomitant]
     Route: 065
  3. HYDRODIURIL [Concomitant]
     Route: 065
  4. ASPIRIN [Concomitant]
     Route: 065

REACTIONS (7)
  - ACUTE MYOCARDIAL INFARCTION [None]
  - ANAEMIA POSTOPERATIVE [None]
  - ANGINA PECTORIS [None]
  - ARTHRITIS [None]
  - ATELECTASIS [None]
  - OSTEOPOROSIS [None]
  - POSTOPERATIVE FEVER [None]
